FAERS Safety Report 7341496-5 (Version None)
Quarter: 2011Q1

REPORT INFORMATION
  Report Type: 
  Country: None (occurrence: None)
  Receive Date: 20110309
  Receipt Date: 20110304
  Transmission Date: 20110831
  Serious: Yes (Death)
  Sender: FDA-Public Use
  Company Number: FR-JNJFOC-20110200955

PATIENT
  Sex: Female

DRUGS (6)
  1. MORPHINE [Concomitant]
     Indication: CANCER PAIN
     Route: 065
  2. ACTIQ [Suspect]
     Indication: CANCER PAIN
     Dosage: 1600 MCG 4 TIMES PER DAY + 600 MCG AT AN UNKNOWN DOSE
     Route: 048
     Dates: start: 20091109, end: 20110112
  3. ACTIQ [Suspect]
     Route: 048
     Dates: start: 20091109, end: 20110112
  4. BIPERIDYS [Concomitant]
     Indication: NAUSEA
     Route: 065
  5. DURAGESIC-100 [Suspect]
     Indication: CANCER PAIN
     Route: 062
     Dates: start: 20091109, end: 20110112
  6. BIPERIDYS [Concomitant]
     Indication: VOMITING
     Route: 065

REACTIONS (2)
  - AMNESIA [None]
  - NEOPLASM MALIGNANT [None]
